FAERS Safety Report 22955262 (Version 6)
Quarter: 2024Q4

REPORT INFORMATION
  Report Type: Report from Study
  Country: DE (occurrence: DE)
  Receive Date: 20230918
  Receipt Date: 20241016
  Transmission Date: 20250115
  Serious: Yes (Hospitalization, Other)
  Sender: MYLAN
  Company Number: DE-ROCHE-2677818

PATIENT
  Age: 27 Year
  Sex: Female

DRUGS (12)
  1. METHOTREXATE [Suspect]
     Active Substance: METHOTREXATE
     Indication: Psoriatic arthropathy
     Dosage: 15 MILLIGRAM
     Route: 065
     Dates: start: 202302
  2. METHOTREXATE [Suspect]
     Active Substance: METHOTREXATE
     Dosage: 7.5 MILLIGRAM
     Route: 065
     Dates: start: 202303
  3. COMIRNATY (TOZINAMERAN) [Suspect]
     Active Substance: TOZINAMERAN
     Indication: Product used for unknown indication
     Dosage: UNK
     Route: 065
  4. OCREVUS [Suspect]
     Active Substance: OCRELIZUMAB
     Indication: Relapsing multiple sclerosis
     Dosage: 300 MILLIGRAM, EVERY 179 DAYS
     Route: 042
     Dates: start: 20200908, end: 20230327
  5. OCREVUS [Suspect]
     Active Substance: OCRELIZUMAB
     Dosage: 600 MILLIGRAM, EVERY 179 DAYS (SECOND INFUSION)
     Route: 042
     Dates: start: 20200924
  6. OCREVUS [Suspect]
     Active Substance: OCRELIZUMAB
     Dosage: 300 MILLIGRAM,SECOND INFUSION
     Route: 042
     Dates: start: 20200924
  7. OCREVUS [Suspect]
     Active Substance: OCRELIZUMAB
     Dosage: 600 MILLIGRAM,SUBSEQUENT 3RD MAINTENANCE DOSE ON
     Route: 042
     Dates: start: 20200908
  8. CORTISONE [Suspect]
     Active Substance: CORTISONE
     Indication: Pyrexia
     Dosage: 50 MILLIGRAM, QD
     Route: 048
     Dates: start: 20230628, end: 20230702
  9. SUMATRIPTAN [Concomitant]
     Active Substance: SUMATRIPTAN
     Dosage: 50 MILLIGRAM, PRN
     Route: 065
  10. TALTZ [Concomitant]
     Active Substance: IXEKIZUMAB
     Dosage: 80 MILLIGRAM, Q28D
     Route: 065
  11. ACETAMINOPHEN [Concomitant]
     Active Substance: ACETAMINOPHEN
     Dosage: UNK, PRN
     Route: 065
  12. CHOLECALCIFEROL [Concomitant]
     Active Substance: CHOLECALCIFEROL
     Dosage: 20000 INTERNATIONAL UNIT, QW
     Route: 065

REACTIONS (39)
  - Jaw fistula [Recovered/Resolved]
  - Epilepsy [Not Recovered/Not Resolved]
  - Psoriatic arthropathy [Recovered/Resolved]
  - Pneumonia [Recovered/Resolved]
  - Respiratory tract infection [Not Recovered/Not Resolved]
  - Gastrointestinal infection [Recovered/Resolved]
  - Ovarian abscess [Not Recovered/Not Resolved]
  - Fallopian tube abscess [Not Recovered/Not Resolved]
  - Pulmonary embolism [Recovered/Resolved]
  - Acute kidney injury [Recovered/Resolved]
  - Insomnia [Recovered/Resolved]
  - Sensation of foreign body [Recovered/Resolved]
  - Constipation [Recovered/Resolved]
  - Tonsillar inflammation [Recovered/Resolved]
  - Cystitis noninfective [Recovered/Resolved]
  - Autoinflammatory disease [Recovered/Resolved]
  - Listless [Recovered/Resolved]
  - Abdominal pain [Recovered/Resolved]
  - Pain in jaw [Recovered/Resolved]
  - COVID-19 [Recovered/Resolved]
  - Sleep disorder [Recovering/Resolving]
  - Wound [Recovered/Resolved]
  - Gait disturbance [Recovering/Resolving]
  - Migraine [Recovered/Resolved]
  - Initial insomnia [Recovered/Resolved]
  - Rhinorrhoea [Recovered/Resolved]
  - Food craving [Recovered/Resolved]
  - Stress [Recovered/Resolved]
  - Toothache [Recovered/Resolved]
  - Chills [Recovered/Resolved]
  - Liver function test increased [Recovered/Resolved]
  - Fatigue [Not Recovered/Not Resolved]
  - Sinusitis [Recovered/Resolved]
  - Scarlet fever [Recovered/Resolved]
  - Nausea [Recovered/Resolved]
  - Headache [Recovered/Resolved]
  - Pyrexia [Recovered/Resolved]
  - Tonsillitis [Recovered/Resolved]
  - Herpes zoster [Recovered/Resolved]

NARRATIVE: CASE EVENT DATE: 20230201
